FAERS Safety Report 5692343-9 (Version None)
Quarter: 2008Q2

REPORT INFORMATION
  Report Type: 
  Country: None (occurrence: None)
  Receive Date: 20080328
  Receipt Date: 20071210
  Transmission Date: 20081010
  Serious: Yes (Other)
  Sender: FDA-Public Use
  Company Number: US-WYE-H01667507

PATIENT
  Age: 76 Year
  Sex: Male
  Weight: 79.9 kg

DRUGS (11)
  1. TORISEL [Suspect]
     Indication: METASTATIC RENAL CELL CARCINOMA
     Dosage: 25 MG 1X PER 1 WK, INTRAVENOUS
     Route: 042
     Dates: start: 20071012, end: 20071109
  2. TOPROL-XL [Concomitant]
  3. NORVASC [Concomitant]
  4. LOVASTATIN [Concomitant]
  5. ASPIRIN [Concomitant]
  6. HYDROCHLOROTHIAZIDE [Concomitant]
  7. FISH OIL, HYDROGENATED (FISH OIL, HYDROGENATED) [Concomitant]
  8. MEGACE [Concomitant]
  9. OXYCODONE HCL [Concomitant]
  10. POTASSIUM (POTASSIUM) [Concomitant]
  11. ENALAPRIL MALEATE [Concomitant]

REACTIONS (8)
  - CELLULITIS [None]
  - DYSPNOEA [None]
  - FEELING COLD [None]
  - MOUTH ULCERATION [None]
  - MUCOSAL INFLAMMATION [None]
  - PRURITUS [None]
  - RASH [None]
  - SWELLING [None]
